FAERS Safety Report 7383950-6 (Version None)
Quarter: 2011Q1

REPORT INFORMATION
  Report Type: 
  Country: None (occurrence: None)
  Receive Date: 20110330
  Receipt Date: 20110121
  Transmission Date: 20110831
  Serious: No
  Sender: FDA-Public Use
  Company Number: US-MYLANLABS-2011S1001671

PATIENT
  Sex: Female

DRUGS (2)
  1. TOPIRAMATE [Suspect]
     Indication: BIPOLAR DISORDER
     Dates: start: 20100101, end: 20100101
  2. TOPIRAMATE [Suspect]
     Dates: start: 20110101

REACTIONS (1)
  - SPEECH DISORDER [None]
